FAERS Safety Report 15485164 (Version 1)
Quarter: 2018Q4

REPORT INFORMATION
  Report Type: Spontaneous
  Country: US (occurrence: US)
  Receive Date: 20181010
  Receipt Date: 20181010
  Transmission Date: 20190205
  Serious: Yes (Other)
  Sender: FDA-Public Use
  Company Number: US-ROCHE-2151018

PATIENT
  Age: 51 Year
  Sex: Male

DRUGS (12)
  1. TRAMADOL. [Concomitant]
     Active Substance: TRAMADOL
  2. FUROSEMIDE. [Concomitant]
     Active Substance: FUROSEMIDE
  3. FOLIC ACID. [Concomitant]
     Active Substance: FOLIC ACID
  4. TAMULOSIN [Concomitant]
     Active Substance: TAMSULOSIN
  5. ELIQUIS [Concomitant]
     Active Substance: APIXABAN
  6. ALECENSA [Suspect]
     Active Substance: ALECTINIB HYDROCHLORIDE
     Indication: MALIGNANT RESPIRATORY TRACT NEOPLASM
     Route: 048
     Dates: start: 20180419
  7. HYDROCODONE BITARTRATE AND ACETAMINOPHEN [Concomitant]
     Active Substance: ACETAMINOPHEN\HYDROCODONE BITARTRATE
  8. ZOLPIDEM [Concomitant]
     Active Substance: ZOLPIDEM\ZOLPIDEM TARTRATE
  9. POTASSIUM CHLORIDE. [Concomitant]
     Active Substance: POTASSIUM CHLORIDE
     Dosage: POT CL MICRO
     Route: 065
  10. GABAPENTIN. [Concomitant]
     Active Substance: GABAPENTIN
  11. LORAZEPAM. [Concomitant]
     Active Substance: LORAZEPAM
  12. FERROUS SULFATE. [Concomitant]
     Active Substance: FERROUS SULFATE

REACTIONS (2)
  - Constipation [Unknown]
  - Nausea [Unknown]

NARRATIVE: CASE EVENT DATE: 201806
